FAERS Safety Report 4673052-1 (Version None)
Quarter: 2005Q2

REPORT INFORMATION
  Report Type: 
  Country: None (occurrence: None)
  Receive Date: 20050523
  Receipt Date: 20050505
  Transmission Date: 20051028
  Serious: Yes (Other)
  Sender: FDA-Public Use
  Company Number: 2005-BP-07696RO

PATIENT
  Sex: Male

DRUGS (2)
  1. AZATHIOPRINE [Suspect]
     Indication: PROPHYLAXIS AGAINST TRANSPLANT REJECTION
     Dosage: 150 MG/DAY PO
     Route: 048
  2. PREDNISOLONE [Concomitant]

REACTIONS (6)
  - ANISOCYTOSIS [None]
  - APLASIA PURE RED CELL [None]
  - MACROCYTOSIS [None]
  - POIKILOCYTOSIS [None]
  - THERAPY NON-RESPONDER [None]
  - WHITE BLOOD CELL COUNT DECREASED [None]
